FAERS Safety Report 11832535 (Version 1)
Quarter: 2015Q4

REPORT INFORMATION
  Report Type: Spontaneous
  Country: ES (occurrence: ES)
  Receive Date: 20151214
  Receipt Date: 20151214
  Transmission Date: 20160305
  Serious: Yes (Other)
  Sender: FDA-Public Use
  Company Number: ES-GILEAD-2015-0185651

PATIENT
  Age: 58 Year
  Sex: Male

DRUGS (8)
  1. REBETOL [Suspect]
     Active Substance: RIBAVIRIN
     Indication: HEPATITIS C
     Dosage: 400 MG, BID
     Route: 048
     Dates: start: 20150611, end: 20150730
  2. REBETOL [Suspect]
     Active Substance: RIBAVIRIN
     Dosage: 300 MG, BID
     Route: 048
     Dates: start: 20150605, end: 20150611
  3. RIFAXIMINA [Concomitant]
     Active Substance: RIFAXIMIN
     Route: 048
  4. NEORAL SANDIMMUN [Concomitant]
     Active Substance: CYCLOSPORINE
     Route: 048
  5. REBETOL [Suspect]
     Active Substance: RIBAVIRIN
     Dosage: 300 MG, BID
     Route: 048
     Dates: end: 20150813
  6. REBETOL [Suspect]
     Active Substance: RIBAVIRIN
     Dosage: 200 MG, BID
     Route: 048
     Dates: end: 20150925
  7. ENALAPRIL [Concomitant]
     Active Substance: ENALAPRIL
     Route: 048
  8. HARVONI [Suspect]
     Active Substance: LEDIPASVIR\SOFOSBUVIR
     Indication: HEPATITIS C
     Route: 048
     Dates: start: 20150605, end: 20151117

REACTIONS (1)
  - Erythema nodosum [Recovering/Resolving]

NARRATIVE: CASE EVENT DATE: 20150710
